FAERS Safety Report 6662089-9 (Version None)
Quarter: 2010Q1

REPORT INFORMATION
  Report Type: 
  Country: None (occurrence: None)
  Receive Date: 20100331
  Receipt Date: 20100324
  Transmission Date: 20100710
  Serious: Yes (Other)
  Sender: FDA-Public Use
  Company Number: TW-ELI_LILLY_AND_COMPANY-TW201003006796

PATIENT
  Sex: Male

DRUGS (1)
  1. ALIMTA [Suspect]
     Indication: NON-SMALL CELL LUNG CANCER
     Dosage: UNK, EVERY 21 DAYS

REACTIONS (1)
  - LUMBAR SPINAL STENOSIS [None]
